FAERS Safety Report 4722598-6 (Version None)
Quarter: 2005Q3

REPORT INFORMATION
  Report Type: 
  Country: None (occurrence: None)
  Receive Date: 20050722
  Receipt Date: 20050713
  Transmission Date: 20060218
  Serious: Yes (Other)
  Sender: FDA-Public Use
  Company Number: GB-MERCK-0507GBR00111

PATIENT
  Age: 62 Year
  Sex: Female
  Weight: 60 kg

DRUGS (12)
  1. ZETIA [Suspect]
     Indication: BLOOD CHOLESTEROL INCREASED
     Route: 048
     Dates: start: 20031110, end: 20031124
  2. ZETIA [Suspect]
     Route: 048
     Dates: start: 20050317, end: 20050518
  3. ZETIA [Suspect]
     Indication: MYOCARDIAL INFARCTION
     Route: 048
     Dates: start: 20031110, end: 20031124
  4. ZETIA [Suspect]
     Route: 048
     Dates: start: 20050317, end: 20050518
  5. RAMIPRIL [Concomitant]
     Route: 048
     Dates: start: 20030101
  6. DOXAZOSIN MESYLATE [Concomitant]
     Route: 048
     Dates: start: 19990101
  7. ASPIRIN [Concomitant]
     Route: 048
     Dates: start: 20000101
  8. HYDROXYCHLOROQUINE SULFATE [Concomitant]
     Route: 048
     Dates: start: 19980101
  9. ATENOLOL [Concomitant]
     Route: 048
     Dates: start: 20000101
  10. RISEDRONATE SODIUM [Concomitant]
     Route: 048
     Dates: start: 20040101
  11. PREDNISOLONE [Concomitant]
     Route: 048
     Dates: start: 19990101
  12. PREDNISOLONE [Concomitant]
     Route: 065
     Dates: start: 20030101

REACTIONS (6)
  - ABDOMINAL PAIN [None]
  - CONSTIPATION [None]
  - FATIGUE [None]
  - INSOMNIA [None]
  - MUSCULOSKELETAL STIFFNESS [None]
  - MYALGIA [None]
